FAERS Safety Report 14290458 (Version 6)
Quarter: 2019Q2

REPORT INFORMATION
  Report Type: Report from Study
  Country: US (occurrence: US)
  Receive Date: 20171215
  Receipt Date: 20190603
  Transmission Date: 20190711
  Serious: Yes (Other)
  Sender: FDA-Public Use
  Company Number: US-JNJFOC-20160920427

PATIENT
  Age: 67 Year
  Sex: Male

DRUGS (37)
  1. IMBRUVICA [Suspect]
     Active Substance: IBRUTINIB
     Indication: WALDENSTROM^S MACROGLOBULINAEMIA
     Route: 048
  2. CALCIUM [Concomitant]
     Active Substance: CALCIUM
     Indication: SUPPLEMENTATION THERAPY
     Dosage: 600 MG, QD, MANY YEARS AGO
  3. ADVAIR HFA [Concomitant]
     Active Substance: FLUTICASONE PROPIONATE\SALMETEROL XINAFOATE
     Indication: ASTHMA
     Dosage: 2 PUFFS, QD AS NEEDED , MANY YEARS AGO
  4. CAPSAICIN. [Concomitant]
     Active Substance: CAPSAICIN
     Indication: NEUROPATHY PERIPHERAL
     Dosage: UNK MANY YEARS AGO
     Route: 061
  5. BUPROPION. [Concomitant]
     Active Substance: BUPROPION
     Indication: DEPRESSION
  6. PAROXETINE. [Concomitant]
     Active Substance: PAROXETINE
     Indication: DEPRESSION
     Dosage: 20 MG TID, MANY YEARS AGO
  7. FUROSEMIDE. [Concomitant]
     Active Substance: FUROSEMIDE
  8. IMBRUVICA [Suspect]
     Active Substance: IBRUTINIB
     Indication: WALDENSTROM^S MACROGLOBULINAEMIA
     Route: 048
     Dates: start: 20160817
  9. NEXIUM [Concomitant]
     Active Substance: ESOMEPRAZOLE MAGNESIUM
     Indication: GASTROOESOPHAGEAL REFLUX DISEASE
     Dosage: UNK,UNK, QD, ASNEEDED , MANY YEARS AGO
  10. OTEZLA [Concomitant]
     Active Substance: APREMILAST
     Indication: PSORIASIS
     Dosage: 30 MG, BD, MANY YEARS AGO
  11. VITAMIN C [Concomitant]
     Active Substance: ASCORBIC ACID
  12. ALBUTEROL. [Concomitant]
     Active Substance: ALBUTEROL
  13. IRON [Concomitant]
     Active Substance: IRON
  14. FEXOFENADINE [Concomitant]
     Active Substance: FEXOFENADINE\FEXOFENADINE HYDROCHLORIDE
     Indication: HYPERSENSITIVITY
     Dosage: 180 MG, QD, MANY YEARS AGO
  15. FISH OIL [Concomitant]
     Active Substance: FISH OIL
     Indication: SUPPLEMENTATION THERAPY
     Dosage: 1000 MG QD, MANY YEARS AGO
  16. PAROXETINE. [Concomitant]
     Active Substance: PAROXETINE
     Indication: DEPRESSION
     Dosage: 20 MG, TID, MANY YEARS AGO
  17. FLONASE [Concomitant]
     Active Substance: FLUTICASONE PROPIONATE
     Indication: HYPERSENSITIVITY
     Dosage: UNK, MANY YEARS AGO, ONE PUFF PER NOSTRIL TWICE A DAY
  18. DOCUSATE SODIUM. [Concomitant]
     Active Substance: DOCUSATE SODIUM
     Indication: FAECES HARD
     Dosage: UNK, MANY YEARS AGO
  19. CLOBETASOL PROPIONATE. [Concomitant]
     Active Substance: CLOBETASOL PROPIONATE
     Indication: PSORIASIS
     Dosage: 0.5 %, UNK, SMALL AMOUNT TO AFFECTED AREA
  20. MELATONIN [Concomitant]
     Active Substance: MELATONIN
     Indication: INSOMNIA
     Dosage: UNK MANY YEARS AGO
  21. LISTERINE ORIGINAL [Concomitant]
     Active Substance: EUCALYPTOL\MENTHOL\METHYL SALICYLATE\THYMOL
  22. CALLEX [Concomitant]
  23. VENTOLIN HFA [Concomitant]
     Active Substance: ALBUTEROL SULFATE
  24. GUAIFENESIN. [Concomitant]
     Active Substance: GUAIFENESIN
  25. METAMUCIL [Concomitant]
     Active Substance: PLANTAGO SEED
  26. BUPROPION. [Concomitant]
     Active Substance: BUPROPION
     Indication: DEPRESSION
     Dosage: 50 MG, QD, MANY YEARS AGO(EXTENDED -RELEASE)
  27. PROVIGIL [Concomitant]
     Active Substance: MODAFINIL
     Indication: ATTENTION DEFICIT/HYPERACTIVITY DISORDER
     Dosage: 200 MG IN MORNING AND 100 MG IN AFTER NOON, MANY YEARS AGO
  28. OXYBUTYNIN. [Concomitant]
     Active Substance: OXYBUTYNIN CHLORIDE
     Indication: INCONTINENCE
     Dosage: 10 MG, QD, MANY YEARS AGO (EXTENDED RELEASE)
  29. NEILMED SINUS RINSE [Concomitant]
     Active Substance: SODIUM BICARBONATE\SODIUM CHLORIDE
     Indication: UPPER-AIRWAY COUGH SYNDROME
     Dosage: UNK MANY YEARS AGO
  30. ALLEGRA [Concomitant]
     Active Substance: FEXOFENADINE HYDROCHLORIDE
  31. SODIUM FLUORIDE. [Concomitant]
     Active Substance: SODIUM FLUORIDE
     Indication: ORAL DISORDER
     Dosage: UNK, MANY YEARS AGO
  32. MULTIVITAMINS [Concomitant]
     Active Substance: VITAMINS
     Indication: SUPPLEMENTATION THERAPY
     Dosage: UNK, MANY YEARS AGO
  33. IBUPROFEN. [Concomitant]
     Active Substance: IBUPROFEN
  34. VITAMIN D NOS [Concomitant]
     Active Substance: VITAMIN D NOS
     Indication: SUPPLEMENTATION THERAPY
     Dosage: 800 IU QD MANY YEARS AGO
  35. ALFUZOSIN [Concomitant]
     Active Substance: ALFUZOSIN
  36. BUPROPION. [Concomitant]
     Active Substance: BUPROPION
  37. PAXIL [Concomitant]
     Active Substance: PAROXETINE HYDROCHLORIDE

REACTIONS (37)
  - Dental caries [Unknown]
  - Sputum discoloured [Unknown]
  - Tooth fracture [Unknown]
  - Dyspnoea [Unknown]
  - Nasopharyngitis [Not Recovered/Not Resolved]
  - Productive cough [Not Recovered/Not Resolved]
  - Off label use [Unknown]
  - Vertigo [Recovering/Resolving]
  - Feeling abnormal [Unknown]
  - Memory impairment [Unknown]
  - Blood count abnormal [Recovering/Resolving]
  - Asthenia [Not Recovered/Not Resolved]
  - Depression [Unknown]
  - Haemorrhage [Recovering/Resolving]
  - Insomnia [Not Recovered/Not Resolved]
  - Tooth infection [Unknown]
  - Vision blurred [Not Recovered/Not Resolved]
  - Conversion disorder [Not Recovered/Not Resolved]
  - Apathy [Not Recovered/Not Resolved]
  - Tooth loss [Unknown]
  - Balance disorder [Recovering/Resolving]
  - Pain [Not Recovered/Not Resolved]
  - Psoriasis [Not Recovered/Not Resolved]
  - Dysphonia [Not Recovered/Not Resolved]
  - Bronchitis [Unknown]
  - Attention deficit/hyperactivity disorder [Not Recovered/Not Resolved]
  - Product dose omission [Unknown]
  - Incorrect dose administered [Unknown]
  - Skin fissures [Unknown]
  - Oedema peripheral [Not Recovered/Not Resolved]
  - Peripheral swelling [Recovering/Resolving]
  - Astigmatism [Unknown]
  - Pancytopenia [Not Recovered/Not Resolved]
  - Road traffic accident [Recovered/Resolved]
  - Fatigue [Not Recovered/Not Resolved]
  - Dizziness [Not Recovered/Not Resolved]
  - Fall [Unknown]

NARRATIVE: CASE EVENT DATE: 201608
